FAERS Safety Report 8617192-0 (Version None)
Quarter: 2012Q3

REPORT INFORMATION
  Report Type: 
  Country: None (occurrence: None)
  Receive Date: 20120823
  Receipt Date: 20120814
  Transmission Date: 20120928
  Serious: Yes (Other)
  Sender: FDA-Public Use
  Company Number: US-ASTRAZENECA-2009UW05963

PATIENT
  Age: 61 Year
  Sex: Female

DRUGS (6)
  1. BETA BLOCKERS [Concomitant]
  2. STATIN [Concomitant]
  3. SIMVASTATIN [Concomitant]
  4. ARIMIDEX [Suspect]
     Indication: BREAST CANCER
     Route: 048
     Dates: start: 20090220
  5. METOPROLOL TARTRATE [Concomitant]
     Route: 048
  6. ASPIRIN [Concomitant]

REACTIONS (15)
  - CONSTIPATION [None]
  - INTRACARDIAC MASS [None]
  - ATRIOVENTRICULAR BLOCK SECOND DEGREE [None]
  - HOT FLUSH [None]
  - BLOOD CHOLESTEROL INCREASED [None]
  - HEART VALVE INCOMPETENCE [None]
  - ALOPECIA [None]
  - CORONARY ARTERY OCCLUSION [None]
  - DYSPNOEA [None]
  - INSOMNIA [None]
  - OSTEOPENIA [None]
  - CARDIOMEGALY [None]
  - CHILLS [None]
  - HEART RATE DECREASED [None]
  - RED BLOOD CELL COUNT DECREASED [None]
